FAERS Safety Report 8427667-5 (Version None)
Quarter: 2012Q2

REPORT INFORMATION
  Report Type: 
  Country: None (occurrence: None)
  Receive Date: 20120611
  Receipt Date: 20120531
  Transmission Date: 20120825
  Serious: Yes (Other)
  Sender: FDA-Public Use
  Company Number: US-ACTELION-A-NJ2011-52128

PATIENT

DRUGS (2)
  1. TRACLEER [Suspect]
     Indication: PULMONARY ARTERIAL HYPERTENSION
     Dosage: UNK
     Route: 048
     Dates: start: 20101214
  2. TYVASO [Concomitant]

REACTIONS (4)
  - DYSPNOEA [None]
  - VASCULAR OCCLUSION [None]
  - STENT PLACEMENT [None]
  - HYPERHIDROSIS [None]
